FAERS Safety Report 23108125 (Version 4)
Quarter: 2024Q1

REPORT INFORMATION
  Report Type: Spontaneous
  Country: JP (occurrence: JP)
  Receive Date: 20231026
  Receipt Date: 20240101
  Transmission Date: 20240409
  Serious: Yes (Hospitalization, Disabling, Other)
  Sender: FDA-Public Use
  Company Number: JP-GILEAD-2023-0647991

PATIENT
  Age: 6 Year
  Sex: Female

DRUGS (14)
  1. AMBISOME [Suspect]
     Active Substance: AMPHOTERICIN B
     Indication: Systemic mycosis
     Route: 041
     Dates: start: 20201121, end: 20201203
  2. AMBISOME [Suspect]
     Active Substance: AMPHOTERICIN B
     Indication: Disseminated mucormycosis
     Route: 041
     Dates: start: 20201204, end: 20210618
  3. AMBISOME [Suspect]
     Active Substance: AMPHOTERICIN B
     Dosage: 200 MG, OTHER (ONCE EVERY 2 DAYS)
     Route: 041
     Dates: start: 20210619, end: 20210914
  4. AMBISOME [Suspect]
     Active Substance: AMPHOTERICIN B
     Route: 041
     Dates: start: 20211015, end: 20211019
  5. AMBISOME [Suspect]
     Active Substance: AMPHOTERICIN B
     Dosage: 200 MG, OTHER (ONCE EVERY 2DAYS)
     Route: 041
     Dates: start: 20211020, end: 20211107
  6. AMBISOME [Suspect]
     Active Substance: AMPHOTERICIN B
     Route: 041
     Dates: start: 20211127, end: 20211212
  7. AMBISOME [Suspect]
     Active Substance: AMPHOTERICIN B
     Route: 041
     Dates: start: 20211213, end: 20211219
  8. AMBISOME [Suspect]
     Active Substance: AMPHOTERICIN B
     Dosage: 170 MG, OTHER (ONCE EVERY 2 DAYS)
     Route: 041
     Dates: start: 20211220, end: 20220118
  9. AMBISOME [Suspect]
     Active Substance: AMPHOTERICIN B
     Dosage: 80 MG, OTHER (ONCE EVERY 2 DAYS)
     Route: 041
     Dates: start: 20220119, end: 20220228
  10. AMBISOME [Suspect]
     Active Substance: AMPHOTERICIN B
     Route: 041
     Dates: start: 20220301, end: 20220425
  11. NOXAFIL [Concomitant]
     Active Substance: POSACONAZOLE
     Indication: Systemic mycosis
     Route: 041
     Dates: start: 20201204, end: 20210107
  12. NOXAFIL [Concomitant]
     Active Substance: POSACONAZOLE
     Indication: Disseminated mucormycosis
     Route: 041
     Dates: start: 20210915, end: 20211014
  13. TOZINAMERAN [Concomitant]
     Active Substance: TOZINAMERAN
     Indication: Product used for unknown indication
     Dosage: UNK UNK, UNKNOWN FREQ.
     Route: 065
  14. POSACONAZOLE [Concomitant]
     Active Substance: POSACONAZOLE
     Indication: Product used for unknown indication
     Dosage: UNK UNK, UNKNOWN FREQ.
     Route: 065

REACTIONS (2)
  - Cardiac failure [Recovering/Resolving]
  - Renal impairment [Unknown]
